FAERS Safety Report 5100570-4 (Version None)
Quarter: 2006Q3

REPORT INFORMATION
  Report Type: 
  Country: None (occurrence: None)
  Receive Date: 20060907
  Receipt Date: 20060907
  Transmission Date: 20061208
  Serious: No
  Sender: FDA-Public Use
  Company Number: None

PATIENT
  Sex: Male

DRUGS (1)
  1. DDAVP [Suspect]
     Indication: HYPOPITUITARISM
     Dosage: 10 MCG 1-2 SPRAYS QD

REACTIONS (1)
  - DRUG EFFECT DECREASED [None]
